FAERS Safety Report 7435264-3 (Version None)
Quarter: 2011Q2

REPORT INFORMATION
  Report Type: 
  Country: None (occurrence: None)
  Receive Date: 20110425
  Receipt Date: 20110408
  Transmission Date: 20111010
  Serious: Yes (Hospitalization, Other)
  Sender: FDA-Public Use
  Company Number: PHHY2011JP29842

PATIENT
  Age: 74 Year
  Sex: Male

DRUGS (2)
  1. AMLODIPINE BESILATE [Concomitant]
     Dosage: 5 MG, QD
     Route: 048
  2. RASILEZ [Suspect]
     Indication: HYPERTENSION
     Dosage: 150 MG, QD
     Route: 048
     Dates: start: 20100701, end: 20110405

REACTIONS (3)
  - CEREBRAL INFARCTION [None]
  - DIZZINESS [None]
  - INAPPROPRIATE ANTIDIURETIC HORMONE SECRETION [None]
